FAERS Safety Report 11939042 (Version 1)
Quarter: 2016Q1

REPORT INFORMATION
  Report Type: Spontaneous
  Country: JP (occurrence: JP)
  Receive Date: 20160122
  Receipt Date: 20160122
  Transmission Date: 20160526
  Serious: Yes (Other)
  Sender: FDA-Public Use
  Company Number: JP-SUN PHARMACEUTICAL INDUSTRIES LTD-2016RR-109773

PATIENT

DRUGS (4)
  1. PACLITAXEL. [Suspect]
     Active Substance: PACLITAXEL
     Indication: CHEMOTHERAPY
     Dosage: 80 MG/MM2 ON DAYS 1, 8 AND 15, 6 CORSES
     Route: 042
     Dates: start: 20090827
  2. CARBOPLATIN. [Suspect]
     Active Substance: CARBOPLATIN
     Indication: CHEMOTHERAPY
     Dosage: AREA UNDER THE CURVE, 2.0 MG/ML PER MIN, ON DAYS 1, 8, AND 15.
     Route: 042
     Dates: start: 20090827
  3. BEVACIZUMAB [Suspect]
     Active Substance: BEVACIZUMAB
     Indication: CHEMOTHERAPY
     Dosage: 2 MG/KG, ON DAYS 1 AND 8
     Route: 042
     Dates: start: 20090827
  4. BEVACIZUMAB [Suspect]
     Active Substance: BEVACIZUMAB
     Dosage: 4 MG/KG, ON DAY 15
     Route: 042

REACTIONS (5)
  - Leukopenia [Unknown]
  - Exposure during pregnancy [Unknown]
  - Neuropathy peripheral [Unknown]
  - Lethargy [Unknown]
  - Diarrhoea [Unknown]
